FAERS Safety Report 7207977-X (Version None)
Quarter: 2010Q4

REPORT INFORMATION
  Report Type: 
  Country: None (occurrence: None)
  Receive Date: 20101230
  Receipt Date: 20101230
  Transmission Date: 20110411
  Serious: Yes (Life-Threatening, Disabling, Other)
  Sender: FDA-Public Use
  Company Number: None

PATIENT
  Sex: Female
  Weight: 57.6068 kg

DRUGS (3)
  1. PROPOXYPHENE HYDROCHLORIDE W/ ACETAMINOPHEN TAB [Suspect]
     Indication: MIGRAINE
  2. PROPOXYPHENE HYDROCHLORIDE W/ ACETAMINOPHEN TAB [Suspect]
     Indication: TRANSIENT ISCHAEMIC ATTACK
  3. DARVOCET-N 100 [Suspect]

REACTIONS (23)
  - ASTHMA [None]
  - CHRONIC OBSTRUCTIVE PULMONARY DISEASE [None]
  - CONDITION AGGRAVATED [None]
  - CONSTIPATION [None]
  - CROHN'S DISEASE [None]
  - DIVERTICULUM [None]
  - EMPHYSEMA [None]
  - GASTROOESOPHAGEAL REFLUX DISEASE [None]
  - HEPATIC STEATOSIS [None]
  - HIATUS HERNIA [None]
  - IRRITABLE BOWEL SYNDROME [None]
  - ISCHAEMIA [None]
  - MIGRAINE [None]
  - MYALGIA [None]
  - NARCOLEPSY [None]
  - NEUROPATHY PERIPHERAL [None]
  - OESOPHAGITIS [None]
  - PAIN [None]
  - PALPITATIONS [None]
  - SCLERODERMA [None]
  - SLEEP APNOEA SYNDROME [None]
  - TRANSIENT ISCHAEMIC ATTACK [None]
  - UNEVALUABLE EVENT [None]
